FAERS Safety Report 24086488 (Version 1)
Quarter: 2024Q3

REPORT INFORMATION
  Report Type: Report from Study
  Country: GB (occurrence: GB)
  Receive Date: 20240712
  Receipt Date: 20240712
  Transmission Date: 20241016
  Serious: Yes (Other)
  Sender: SANDOZ
  Company Number: GB-SANDOZ-SDZ2024GB064595

PATIENT
  Sex: Female

DRUGS (1)
  1. ERELZI [Suspect]
     Active Substance: ETANERCEPT-SZZS
     Indication: Rheumatoid arthritis
     Dosage: 50 MG, QW (PRE-FILLED PENS (SANDOZ LTD) 4 PRE-FILLED DISPOSABLE  INJECTION)
     Route: 058

REACTIONS (1)
  - Rheumatoid arthritis [Unknown]
